FAERS Safety Report 5019245-5 (Version None)
Quarter: 2006Q2

REPORT INFORMATION
  Report Type: 
  Country: None (occurrence: None)
  Receive Date: 20060531
  Receipt Date: 20060518
  Transmission Date: 20061013
  Serious: Yes (Hospitalization)
  Sender: FDA-Public Use
  Company Number: 2006EU001615

PATIENT
  Age: 59 Year
  Sex: Female
  Weight: 49 kg

DRUGS (6)
  1. PROGRAF [Suspect]
     Indication: RENAL TRANSPLANT
     Dosage: 3.5 MG, UID/QD, ORAL
     Route: 048
     Dates: end: 20060325
  2. CYMEVAN (GANCICLOVIR SODIUM) [Suspect]
     Indication: RENAL TRANSPLANT
     Dosage: 150 MG, BID, IV NOS
     Route: 042
     Dates: start: 20060310, end: 20060324
  3. NEORECORMON (EPOETIN BETA) [Suspect]
     Indication: ANAEMIA
     Dosage: SUBCUTANEOUS
     Route: 058
     Dates: end: 20060318
  4. SOLUPRED (PREDNISOLONE SODIUM SULFOBENZOATE) [Concomitant]
  5. OMEPRAZOLE [Concomitant]
  6. CELLCEPT [Concomitant]

REACTIONS (3)
  - CONDITION AGGRAVATED [None]
  - ENCEPHALOPATHY [None]
  - RENAL FAILURE [None]
